FAERS Safety Report 17363492 (Version 1)
Quarter: 2020Q1

REPORT INFORMATION
  Report Type: Spontaneous
  Country: US (occurrence: US)
  Receive Date: 20200203
  Receipt Date: 20200203
  Transmission Date: 20200409
  Serious: Yes (Hospitalization)
  Sender: FDA-Public Use
  Company Number: US-BAUSCH-BL-2020-003060

PATIENT
  Sex: Female
  Weight: 81.72 kg

DRUGS (1)
  1. PYRIDOSTIGMINE BROMIDE TABLETS [Suspect]
     Active Substance: PYRIDOSTIGMINE BROMIDE
     Indication: MYASTHENIA GRAVIS
     Dosage: TWICE DAILY AND AS NEEDED
     Route: 048

REACTIONS (4)
  - Back injury [Unknown]
  - Disease recurrence [Recovering/Resolving]
  - Renal disorder [Recovering/Resolving]
  - Asthma [Recovering/Resolving]

NARRATIVE: CASE EVENT DATE: 2019
